FAERS Safety Report 7815883-2 (Version None)
Quarter: 2011Q4

REPORT INFORMATION
  Report Type: 
  Country: None (occurrence: None)
  Receive Date: 20111014
  Receipt Date: 20111010
  Transmission Date: 20120403
  Serious: Yes (Other)
  Sender: FDA-Public Use
  Company Number: US-CELGENEUS-163-21880-11073129

PATIENT
  Sex: Male

DRUGS (9)
  1. VERAPAMIL [Concomitant]
     Dosage: 180 MILLIGRAM
     Route: 048
     Dates: start: 20110708
  2. REVLIMID [Suspect]
     Dosage: 10 MILLIGRAM
     Route: 048
     Dates: start: 20110704
  3. METOPROLOL TARTRATE [Concomitant]
     Indication: HYPERTENSION
     Dosage: 50 MILLIGRAM
     Route: 048
     Dates: start: 20110617
  4. OXYCODONE HCL [Concomitant]
     Indication: PAIN
     Dosage: 5 MILLIGRAM
     Route: 065
     Dates: start: 20110701
  5. METOPROLOL TARTRATE [Concomitant]
     Indication: CORONARY ARTERY DISEASE
  6. HYDROCHLOROTHIAZIDE [Concomitant]
     Indication: HYPERTENSION
     Dosage: 11.5 MILLIGRAM
     Route: 048
     Dates: end: 20110720
  7. LORTAB [Concomitant]
     Indication: PAIN
     Dosage: 7.5
     Route: 048
     Dates: start: 20110624
  8. VERAPAMIL [Concomitant]
     Indication: HYPERTENSION
     Dosage: 240 MILLIGRAM
     Route: 048
     Dates: start: 20110621
  9. REVLIMID [Suspect]
     Indication: MULTIPLE MYELOMA
     Dosage: 25 MILLIGRAM
     Route: 048
     Dates: start: 20091218

REACTIONS (3)
  - LUNG NEOPLASM MALIGNANT [None]
  - SUPRAVENTRICULAR TACHYCARDIA [None]
  - BLOOD PRESSURE DECREASED [None]
